FAERS Safety Report 5113643-7 (Version None)
Quarter: 2006Q3

REPORT INFORMATION
  Report Type: 
  Country: None (occurrence: None)
  Receive Date: 20060925
  Receipt Date: 20060913
  Transmission Date: 20061208
  Serious: Yes (Other)
  Sender: FDA-Public Use
  Company Number: PHBS2006ES13884

PATIENT
  Age: 56 Year
  Sex: Female

DRUGS (1)
  1. ZOMETA [Suspect]
     Indication: BREAST CANCER FEMALE
     Dosage: 4 MG, UNK
     Route: 065
     Dates: start: 20040101

REACTIONS (1)
  - OSTEOMYELITIS [None]
